FAERS Safety Report 18153844 (Version 2)
Quarter: 2020Q3

REPORT INFORMATION
  Report Type: Spontaneous
  Country: US (occurrence: US)
  Receive Date: 20200816
  Receipt Date: 20200820
  Transmission Date: 20201103
  Serious: Yes (Hospitalization)
  Sender: FDA-Public Use
  Company Number: NVSC2020US220799

PATIENT
  Age: 64 Year
  Sex: Male

DRUGS (3)
  1. METOPROLOL. [Suspect]
     Active Substance: METOPROLOL
     Indication: PULMONARY ARTERIAL HYPERTENSION
     Dosage: UNK, QID, (9 BREATHS)
     Route: 048
     Dates: start: 20200205
  2. TYVASO [Suspect]
     Active Substance: TREPROSTINIL
     Dosage: 54 UG, QID
     Route: 055
     Dates: start: 2020
  3. TYVASO [Suspect]
     Active Substance: TREPROSTINIL
     Indication: PRODUCT USED FOR UNKNOWN INDICATION
     Dosage: UNK
     Route: 065

REACTIONS (1)
  - Dizziness [Unknown]

NARRATIVE: CASE EVENT DATE: 20200731
